FAERS Safety Report 5750345-8 (Version None)
Quarter: 2008Q2

REPORT INFORMATION
  Report Type: 
  Country: None (occurrence: None)
  Receive Date: 20080528
  Receipt Date: 20080521
  Transmission Date: 20081010
  Serious: Yes (Other)
  Sender: FDA-Public Use
  Company Number: FR-JNJFOC-20080304846

PATIENT
  Sex: Male
  Weight: 101 kg

DRUGS (2)
  1. RISPERDAL [Suspect]
     Indication: ANXIETY
     Route: 048
  2. DEPAMIDE [Concomitant]
     Route: 048

REACTIONS (3)
  - NUCHAL RIGIDITY [None]
  - PARAESTHESIA [None]
  - TONGUE OEDEMA [None]
